FAERS Safety Report 6286313-X (Version None)
Quarter: 2009Q3

REPORT INFORMATION
  Report Type: 
  Country: None (occurrence: None)
  Receive Date: 20090728
  Receipt Date: 20081204
  Transmission Date: 20100115
  Serious: No
  Sender: FDA-Public Use
  Company Number: US-TYCO HEALTHCARE/MALLINCKRODT-T200802078

PATIENT

DRUGS (5)
  1. ACETAMINOPHEN AND HYDROCODONE BITARTRATE [Suspect]
     Indication: BACK PAIN
     Dosage: 2 TABS, QID
     Route: 048
     Dates: start: 20081019, end: 20081101
  2. ACETAMINOPHEN AND HYDROCODONE BITARTRATE [Suspect]
     Indication: INTERVERTEBRAL DISC DISORDER
  3. FLEXERIL [Concomitant]
     Indication: MUSCLE SPASMS
     Dosage: 10 MG, BID
     Route: 048
  4. PSEUDOEPHEDRINE HCL [Concomitant]
  5. IBUPROFEN [Concomitant]

REACTIONS (2)
  - DRUG INEFFECTIVE [None]
  - INCORRECT DOSE ADMINISTERED [None]
